FAERS Safety Report 7638347-8 (Version None)
Quarter: 2011Q3

REPORT INFORMATION
  Report Type: 
  Country: None (occurrence: None)
  Receive Date: 20110727
  Receipt Date: 20110725
  Transmission Date: 20111222
  Serious: Yes (Life-Threatening)
  Sender: FDA-Public Use
  Company Number: FR-SANOFI-AVENTIS-2011SA047274

PATIENT
  Age: 61 Year
  Sex: Male

DRUGS (8)
  1. LOVENOX [Suspect]
     Indication: THROMBOSIS PROPHYLAXIS
     Route: 058
     Dates: start: 20100329, end: 20100404
  2. ACETAMINOPHEN [Concomitant]
  3. CORDARONE [Concomitant]
  4. PANTOPRAZOLE SODIUM [Concomitant]
  5. PERMIXON [Concomitant]
  6. HEPARIN SODIUM [Interacting]
     Indication: THROMBOSIS PROPHYLAXIS
     Route: 042
     Dates: start: 20100330, end: 20100331
  7. PREVISCAN [Interacting]
     Route: 048
     Dates: start: 20080101, end: 20100404
  8. TRAMADOL HCL [Concomitant]
     Indication: SCIATICA

REACTIONS (4)
  - ASCITES [None]
  - INTERNATIONAL NORMALISED RATIO INCREASED [None]
  - MUSCLE HAEMORRHAGE [None]
  - PLEURAL EFFUSION [None]
